FAERS Safety Report 9357917 (Version 1)
Quarter: 2013Q2

REPORT INFORMATION
  Report Type: Spontaneous
  Country: US (occurrence: None)
  Receive Date: 20130619
  Receipt Date: 20130619
  Transmission Date: 20140414
  Serious: No
  Sender: FDA-Public Use
  Company Number: None

PATIENT
  Age: 74 Year
  Sex: Female
  Weight: 77.11 kg

DRUGS (1)
  1. JANUVIA 100 MG [Suspect]
     Dosage: 1 TAB 1 ORALLY
     Route: 048
     Dates: start: 201204, end: 20130114

REACTIONS (13)
  - Myalgia [None]
  - Joint swelling [None]
  - Dermatitis [None]
  - Erythema [None]
  - Feeling hot [None]
  - Blood pressure increased [None]
  - Erythema [None]
  - Personality change [None]
  - Abulia [None]
  - Pruritus [None]
  - Eczema [None]
  - Psoriasis [None]
  - Skin disorder [None]
